FAERS Safety Report 24024469 (Version 2)
Quarter: 2024Q3

REPORT INFORMATION
  Report Type: Report from Study
  Country: TR (occurrence: TR)
  Receive Date: 20240628
  Receipt Date: 20240710
  Transmission Date: 20241017
  Serious: No
  Sender: ROCHE
  Company Number: TR-ROCHE-3121144

PATIENT
  Age: 76 Year
  Sex: Female

DRUGS (7)
  1. ALECTINIB [Suspect]
     Active Substance: ALECTINIB
     Indication: Lung cancer metastatic
     Route: 048
     Dates: start: 20210614
  2. PANCREATIN [Concomitant]
     Active Substance: PANCRELIPASE
     Indication: Pancreatic enzymes decreased
     Route: 048
     Dates: start: 20211216
  3. ACETAMINOPHEN [Concomitant]
     Active Substance: ACETAMINOPHEN
     Dosage: PAINKILLER? FREQUENCY TEXT:PRN
     Route: 048
     Dates: start: 20220112
  4. ALECTINIB [Concomitant]
     Active Substance: ALECTINIB
     Dates: start: 20190717
  5. CARBOMER 980 [Concomitant]
     Active Substance: CARBOMER HOMOPOLYMER TYPE C (ALLYL PENTAERYTHRITOL CROSSLINKED)
     Indication: Dry eye
     Route: 061
     Dates: start: 2018
  6. SALMETEROL XINAFOATE [Concomitant]
     Active Substance: SALMETEROL XINAFOATE
     Dosage: BRONCHIAL EXPANDER
     Route: 048
     Dates: start: 201010
  7. FLUTICASONE PROPIONATE [Concomitant]
     Active Substance: FLUTICASONE PROPIONATE
     Dosage: BRONCHIAL EXPANDER
     Route: 048
     Dates: start: 201010

REACTIONS (4)
  - Angina pectoris [Not Recovered/Not Resolved]
  - Flatulence [Not Recovered/Not Resolved]
  - Vitamin D deficiency [Recovered/Resolved]
  - Blood lactate dehydrogenase increased [Not Recovered/Not Resolved]

NARRATIVE: CASE EVENT DATE: 20211116
